FAERS Safety Report 10267165 (Version 1)
Quarter: 2014Q2

REPORT INFORMATION
  Report Type: Spontaneous
  Country: US (occurrence: None)
  Receive Date: 20140625
  Receipt Date: 20140625
  Transmission Date: 20141212
  Serious: Yes (Other)
  Sender: FDA-Public Use
  Company Number: ADE14-020

PATIENT
  Age: 3 Month
  Sex: Female
  Weight: 5.7 kg

DRUGS (1)
  1. HEPARIN SODIUM INJECTION, MDV, 10ML, 1,000 UNITS/ML, 25X SAGENT [Suspect]
     Indication: THERAPEUTIC PROCEDURE
     Route: 042
     Dates: start: 20140605, end: 20140605

REACTIONS (2)
  - Coagulation time prolonged [None]
  - Product quality issue [None]
